FAERS Safety Report 21793193 (Version 1)
Quarter: 2022Q4

REPORT INFORMATION
  Report Type: Spontaneous
  Country: US (occurrence: US)
  Receive Date: 20221229
  Receipt Date: 20221229
  Transmission Date: 20230112
  Serious: No
  Sender: FDA-Public Use
  Company Number: US-PFIZER INC-PV202200129094

PATIENT
  Age: 3 Year
  Sex: Male

DRUGS (1)
  1. SOMATROPIN [Suspect]
     Active Substance: SOMATROPIN
     Dosage: UNK

REACTIONS (4)
  - Wrong technique in product usage process [Unknown]
  - Vascular injury [Unknown]
  - Injection site haemorrhage [Unknown]
  - Injection site bruising [Unknown]
